FAERS Safety Report 4963622-5 (Version None)
Quarter: 2006Q1

REPORT INFORMATION
  Report Type: 
  Country: None (occurrence: None)
  Receive Date: 20060330
  Receipt Date: 20060317
  Transmission Date: 20060701
  Serious: Yes (Hospitalization)
  Sender: FDA-Public Use
  Company Number: 2006038090

PATIENT
  Age: 89 Year
  Sex: Female

DRUGS (4)
  1. NEURONTIN [Suspect]
     Indication: NEUROPATHY PERIPHERAL
     Dosage: ORAL
     Route: 048
     Dates: start: 20030101, end: 20040101
  2. TRAMADOL HCL [Concomitant]
  3. BACLOFEN [Concomitant]
  4. ASCAL (ACETYLSALICYLATE CALCIUM) [Concomitant]

REACTIONS (2)
  - PARKINSON'S DISEASE [None]
  - WEIGHT DECREASED [None]
